FAERS Safety Report 7747608-3 (Version None)
Quarter: 2011Q3

REPORT INFORMATION
  Report Type: 
  Country: None (occurrence: None)
  Receive Date: 20110913
  Receipt Date: 20110906
  Transmission Date: 20111222
  Serious: Yes (Other)
  Sender: FDA-Public Use
  Company Number: CH-BAYER-2011-078451

PATIENT
  Age: 50 Year
  Sex: Female
  Weight: 67.5 kg

DRUGS (2)
  1. MIRENA [Suspect]
     Indication: CONTRACEPTION
     Dosage: UNK
     Route: 015
     Dates: start: 20110607, end: 20110720
  2. MIRENA [Suspect]
     Indication: AMENORRHOEA

REACTIONS (3)
  - UTERINE PERFORATION [None]
  - DEVICE DISLOCATION [None]
  - ABDOMINAL PAIN [None]
